FAERS Safety Report 9943835 (Version 2)
Quarter: 2014Q1

REPORT INFORMATION
  Report Type: Report from Study
  Country: US (occurrence: US)
  Receive Date: 20140303
  Receipt Date: 20140303
  Transmission Date: 20141002
  Serious: No
  Sender: FDA-Public Use
  Company Number: US-ABBVIE-13P-163-1038116-00

PATIENT
  Age: 59 Year
  Sex: Female

DRUGS (17)
  1. HUMIRA [Suspect]
     Indication: CROHN^S DISEASE
     Route: 058
     Dates: start: 20130103
  2. HUMIRA [Suspect]
     Dates: start: 20130117, end: 20130117
  3. CALCIUM WITH VITAMIN D [Concomitant]
     Indication: PRODUCT USED FOR UNKNOWN INDICATION
  4. ESTRADIOL [Concomitant]
     Indication: HORMONE REPLACEMENT THERAPY
  5. FISH OIL [Concomitant]
     Indication: PRODUCT USED FOR UNKNOWN INDICATION
  6. FOLIC ACID [Concomitant]
     Indication: PRODUCT USED FOR UNKNOWN INDICATION
  7. IRON [Concomitant]
     Indication: PRODUCT USED FOR UNKNOWN INDICATION
  8. MAGNESIUM [Concomitant]
     Indication: PRODUCT USED FOR UNKNOWN INDICATION
  9. MONTELUKAST [Concomitant]
     Indication: PRODUCT USED FOR UNKNOWN INDICATION
  10. MVI [Concomitant]
     Indication: PRODUCT USED FOR UNKNOWN INDICATION
  11. PROVERA [Concomitant]
     Indication: PRODUCT USED FOR UNKNOWN INDICATION
  12. SULFASALAZINE [Concomitant]
     Indication: PRODUCT USED FOR UNKNOWN INDICATION
  13. TURMERIC [Concomitant]
     Indication: PRODUCT USED FOR UNKNOWN INDICATION
  14. VITAMIN C [Concomitant]
     Indication: PRODUCT USED FOR UNKNOWN INDICATION
  15. VITAMIN E [Concomitant]
     Indication: PRODUCT USED FOR UNKNOWN INDICATION
  16. ZYRTEC-D 12 HOUR [Concomitant]
     Indication: HYPERSENSITIVITY
     Dosage: ONE DAILY
  17. SINGULAR [Concomitant]
     Indication: HYPERSENSITIVITY

REACTIONS (4)
  - Rash pruritic [Recovered/Resolved]
  - Urticaria [Recovered/Resolved]
  - Rash generalised [Recovered/Resolved]
  - Urticaria [Recovered/Resolved]
